FAERS Safety Report 5025359-6 (Version None)
Quarter: 2006Q2

REPORT INFORMATION
  Report Type: 
  Country: None (occurrence: None)
  Receive Date: 20060607
  Receipt Date: 20060526
  Transmission Date: 20061013
  Serious: Yes (Hospitalization)
  Sender: FDA-Public Use
  Company Number: 2006BI007699

PATIENT
  Age: 38 Year
  Sex: Male
  Weight: 89.8122 kg

DRUGS (3)
  1. AVONEX [Suspect]
     Indication: MULTIPLE SCLEROSIS
     Dosage: 30 UG; QW; IM
     Route: 030
     Dates: start: 20040101
  2. DEPAKOTE [Concomitant]
  3. LOTREL [Concomitant]

REACTIONS (2)
  - DEHYDRATION [None]
  - LOSS OF CONSCIOUSNESS [None]
